FAERS Safety Report 8816142 (Version 1)
Quarter: 2012Q4

REPORT INFORMATION
  Report Type: 
  Country: CH (occurrence: CH)
  Receive Date: 20120929
  Receipt Date: 20120929
  Transmission Date: 20130627
  Serious: Yes (Other)
  Sender: FDA-Public Use
  Company Number: CH-009507513-1209CHE010706

PATIENT
  Age: 52 Year
  Sex: Female

DRUGS (6)
  1. REMERON [Suspect]
     Dosage: 45 mg, qd
     Route: 048
     Dates: start: 2007
  2. TOPIRAMATE [Interacting]
     Dosage: 25 mg, qd
     Route: 048
     Dates: start: 20120911, end: 20120912
  3. XYREM [Interacting]
     Dosage: 9 UNK, qd
     Dates: start: 2007
  4. AMITRIPTYLINE HYDROCHLORIDE [Interacting]
     Dosage: UNK
     Route: 048
     Dates: start: 20120910
  5. VERAPAMIL [Interacting]
     Dosage: 400 mg, qd
     Route: 048
     Dates: start: 201209
  6. SUMATRIPTAN SUCCINATE [Interacting]
     Dosage: 6 mg, UNK
     Route: 058
     Dates: start: 201209

REACTIONS (2)
  - Eye movement disorder [Recovering/Resolving]
  - Depressed level of consciousness [Recovering/Resolving]
